FAERS Safety Report 7111560-4 (Version None)
Quarter: 2010Q4

REPORT INFORMATION
  Report Type: 
  Country: None (occurrence: None)
  Receive Date: 20101118
  Receipt Date: 20100707
  Transmission Date: 20110411
  Serious: Yes (Other)
  Sender: FDA-Public Use
  Company Number: US-PFIZER INC-2010084683

PATIENT

DRUGS (3)
  1. ZYVOX [Suspect]
     Dosage: UNK
  2. ZYPREXA [Suspect]
     Dosage: UNK
  3. REGLAN [Suspect]
     Dosage: UNK

REACTIONS (1)
  - SEROTONIN SYNDROME [None]
